FAERS Safety Report 23650844 (Version 1)
Quarter: 2024Q1

REPORT INFORMATION
  Report Type: Spontaneous
  Country: JP (occurrence: JP)
  Receive Date: 20240320
  Receipt Date: 20240320
  Transmission Date: 20240410
  Serious: Yes (Hospitalization, Other)
  Sender: FDA-Public Use
  Company Number: JP-SA-2024SA023939

PATIENT

DRUGS (10)
  1. HYDROXYCHLOROQUINE SULFATE [Suspect]
     Active Substance: HYDROXYCHLOROQUINE SULFATE
     Indication: Systemic lupus erythematosus
     Dosage: 400 MG, QOD (FILM-COATED TABLET)
     Route: 048
     Dates: start: 20231229, end: 20240118
  2. HYDROXYCHLOROQUINE SULFATE [Suspect]
     Active Substance: HYDROXYCHLOROQUINE SULFATE
     Dosage: 200 MG, QOD (FILM-COATED TABLET)
     Route: 048
     Dates: start: 20231230, end: 20240117
  3. PREDNISOLONE [Concomitant]
     Active Substance: PREDNISOLONE
     Indication: Systemic lupus erythematosus
     Dosage: 10 MG, QD
     Route: 048
     Dates: start: 20140604
  4. PREDNISOLONE [Concomitant]
     Active Substance: PREDNISOLONE
     Indication: Erythema multiforme
     Dosage: 20 MG, QD
     Route: 048
     Dates: start: 20240118, end: 20240121
  5. PREDNISOLONE [Concomitant]
     Active Substance: PREDNISOLONE
     Dosage: 50 MG, QD
     Route: 048
     Dates: start: 20240122, end: 20240128
  6. PREDNISOLONE [Concomitant]
     Active Substance: PREDNISOLONE
     Dosage: 40 MG, QD
     Route: 048
     Dates: start: 20240129, end: 20240213
  7. PREDNISOLONE [Concomitant]
     Active Substance: PREDNISOLONE
     Dosage: 30 MG, QD
     Route: 048
     Dates: start: 20240214
  8. LAFUTIDINE [Concomitant]
     Active Substance: LAFUTIDINE
     Indication: Ulcer
     Dosage: 10 MG, QD
     Route: 048
     Dates: start: 20210414
  9. LIPITOR [Concomitant]
     Active Substance: ATORVASTATIN CALCIUM
     Indication: Dyslipidaemia
     Dosage: 10 MG, QD
     Route: 048
     Dates: start: 20140523
  10. MICARDIS [Concomitant]
     Active Substance: TELMISARTAN
     Indication: Hypertension
     Dosage: 80 MG, QD
     Route: 048
     Dates: start: 20140609

REACTIONS (4)
  - Skin exfoliation [Recovering/Resolving]
  - Blister [Recovering/Resolving]
  - Erythema multiforme [Recovering/Resolving]
  - Pyrexia [Recovering/Resolving]

NARRATIVE: CASE EVENT DATE: 20240118
